FAERS Safety Report 8572708-8 (Version None)
Quarter: 2012Q3

REPORT INFORMATION
  Report Type: 
  Country: None (occurrence: None)
  Receive Date: 20120806
  Receipt Date: 20120730
  Transmission Date: 20120928
  Serious: Yes (Other)
  Sender: FDA-Public Use
  Company Number: GB-PFIZER INC-2012183590

PATIENT
  Age: 56 Year
  Sex: Male

DRUGS (19)
  1. FUROSEMIDE [Concomitant]
     Dosage: 20MG/2ML
     Route: 042
     Dates: end: 20120712
  2. AMPHOTERICIN B [Concomitant]
  3. SANDO K [Concomitant]
  4. CHLORHEXIDINE GLUCONATE [Concomitant]
     Dosage: 10 ML, 4X/DAY
     Route: 048
  5. NOREPINEPHRINE BITARTRATE [Concomitant]
  6. ONDANSETRON [Concomitant]
     Dosage: 4MG/2ML
  7. PIPERACILLIN AND TAZOBACTAM [Concomitant]
     Route: 042
  8. LINEZOLID [Concomitant]
     Dosage: 600 MG, UNK
     Dates: start: 20120702, end: 20120710
  9. HYDROCORTISONE [Concomitant]
     Dosage: 50 MG, 2X/DAY
  10. TEICOPLANIN [Concomitant]
     Dosage: 400 MG, UNK
     Dates: start: 20120710, end: 20120716
  11. RANITIDINE [Concomitant]
     Dosage: 450 MG, 150MG TWICE DAILY/ 50MG THREE TIMES A DAY (TDS)(NG/IV)
  12. METOCLOPRAMIDE [Concomitant]
     Dosage: 10MG/2ML
     Route: 042
     Dates: start: 20120710, end: 20120714
  13. CASPOFUNGIN [Concomitant]
     Dates: start: 20120706
  14. FLUCONAZOLE [Concomitant]
     Dates: start: 20120702, end: 20120706
  15. CYCLOPHOSPHAMIDE [Concomitant]
     Indication: ANTINEUTROPHIL CYTOPLASMIC ANTIBODY NEGATIVE
  16. MEROPENEM [Concomitant]
     Dates: start: 20120702, end: 20120715
  17. PARACETAMOL [Concomitant]
     Dosage: UNK
  18. VORICONAZOLE [Suspect]
     Indication: ASPERGILLOSIS
     Dosage: 240 MG, 2X/DAY
     Route: 042
     Dates: start: 20120711
  19. CITALOPRAM [Concomitant]
     Dosage: 10 MG, 1X/DAY IN THE MORNING

REACTIONS (3)
  - BLOOD ALKALINE PHOSPHATASE INCREASED [None]
  - BLOOD BILIRUBIN INCREASED [None]
  - LIVER FUNCTION TEST ABNORMAL [None]
